FAERS Safety Report 8877504 (Version 1)
Quarter: 2012Q4

REPORT INFORMATION
  Report Type: 
  Country: FR (occurrence: FR)
  Receive Date: 20121024
  Receipt Date: 20121024
  Transmission Date: 20130627
  Serious: Yes (Hospitalization)
  Sender: FDA-Public Use
  Company Number: FR-PFIZER INC-2012261861

PATIENT
  Age: 67 Year
  Sex: Female

DRUGS (8)
  1. XANAX [Suspect]
     Dosage: 0.25 mg, UNK
     Dates: end: 20120825
  2. ZYLORIC [Suspect]
     Dosage: 200 mg, 1x/day
     Route: 048
     Dates: start: 20120709, end: 20120825
  3. DEPAKOTE [Suspect]
     Indication: SCHIZOAFFECTIVE DISORDER
     Dosage: 500 mg, 2x/day
     Route: 048
     Dates: start: 2010, end: 20120825
  4. ABILIFY [Suspect]
     Indication: SCHIZOAFFECTIVE DISORDER
     Dosage: 5 mg, 1x/day
     Route: 048
     Dates: start: 2011, end: 20120825
  5. LASILIX [Suspect]
     Dosage: 20 mg, UNK
     Dates: end: 20120825
  6. ZOLPIDEM [Suspect]
     Dosage: 0.25 mg, UNK
     Dates: end: 20120825
  7. LOXEN [Concomitant]
     Dosage: 50 mg, UNK
  8. DAFALGAN [Concomitant]
     Dosage: 1 g, UNK

REACTIONS (1)
  - Drug reaction with eosinophilia and systemic symptoms [Recovering/Resolving]
